FAERS Safety Report 4946955-8 (Version None)
Quarter: 2006Q1

REPORT INFORMATION
  Report Type: 
  Country: None (occurrence: None)
  Receive Date: 20060131
  Receipt Date: 20051114
  Transmission Date: 20060701
  Serious: No
  Sender: FDA-Public Use
  Company Number: 200519716US

PATIENT
  Age: 56 Year
  Sex: Female

DRUGS (3)
  1. KETEK [Suspect]
     Indication: BODY TEMPERATURE
     Dosage: 400 MG PO
     Route: 048
     Dates: start: 20051109
  2. KETEK [Suspect]
     Indication: INFECTION
     Dosage: 400 MG PO
     Route: 048
     Dates: start: 20051109
  3. ACCUPRIL [Concomitant]

REACTIONS (1)
  - THROAT TIGHTNESS [None]
